FAERS Safety Report 6419705-6 (Version None)
Quarter: 2009Q4

REPORT INFORMATION
  Report Type: 
  Country: None (occurrence: None)
  Receive Date: 20091029
  Receipt Date: 20091021
  Transmission Date: 20100525
  Serious: Yes (Hospitalization)
  Sender: FDA-Public Use
  Company Number: B0600335A

PATIENT
  Sex: Female

DRUGS (9)
  1. AVANDIA [Suspect]
     Indication: DRUG USE FOR UNKNOWN INDICATION
     Dosage: 4MG PER DAY
     Route: 048
     Dates: start: 20090501, end: 20090702
  2. NOVONORM [Suspect]
     Indication: DRUG USE FOR UNKNOWN INDICATION
     Dosage: 2MG THREE TIMES PER DAY
     Route: 048
     Dates: start: 20090501, end: 20090702
  3. LANTUS [Suspect]
     Indication: DRUG USE FOR UNKNOWN INDICATION
     Dosage: 12IU PER DAY
     Route: 058
     Dates: start: 20090501, end: 20090702
  4. ASPIRIN [Concomitant]
     Route: 048
  5. PLAVIX [Concomitant]
     Route: 048
  6. BELOC ZOK [Concomitant]
     Route: 048
  7. TORSEMIDE [Concomitant]
     Route: 048
  8. PANTOPRAZOLE SODIUM [Concomitant]
     Route: 048
  9. PREDNISONE TAB [Concomitant]
     Route: 065

REACTIONS (3)
  - CONFUSIONAL STATE [None]
  - HYPOGLYCAEMIA [None]
  - UNRESPONSIVE TO STIMULI [None]
